FAERS Safety Report 21970780 (Version 2)
Quarter: 2023Q1

REPORT INFORMATION
  Report Type: Spontaneous
  Country: US (occurrence: US)
  Receive Date: 20230209
  Receipt Date: 20230303
  Transmission Date: 20230417
  Serious: Yes (Death)
  Sender: FDA-Public Use
  Company Number: US-Vifor (International) Inc.-VIT-2023-00884

PATIENT
  Age: 58 Year
  Sex: Male
  Weight: 154.4 kg

DRUGS (1)
  1. MIRCERA [Suspect]
     Active Substance: METHOXY POLYETHYLENE GLYCOL-EPOETIN BETA
     Indication: Anaemia
     Dosage: IV PUSH; FIRST DOSE
     Route: 042
     Dates: start: 20230112, end: 20230112

REACTIONS (5)
  - Cardiac arrest [Fatal]
  - Pulse absent [Fatal]
  - Apnoea [Fatal]
  - Loss of consciousness [Fatal]
  - Dizziness [Fatal]

NARRATIVE: CASE EVENT DATE: 20230112
